FAERS Safety Report 4601443-3 (Version None)
Quarter: 2005Q1

REPORT INFORMATION
  Report Type: 
  Country: None (occurrence: None)
  Receive Date: 20050308
  Receipt Date: 20050224
  Transmission Date: 20050727
  Serious: Yes (Hospitalization)
  Sender: FDA-Public Use
  Company Number: US-BRISTOL-MYERS SQUIBB COMPANY-12875639

PATIENT
  Age: 42 Year
  Sex: Male
  Weight: 51 kg

DRUGS (15)
  1. CARBOPLATIN [Suspect]
     Indication: NON-SMALL CELL LUNG CANCER
     Dosage: 1ST DOSE: 27-OCT-04 DOSE = 1.5 AUC
     Route: 042
     Dates: start: 20041124, end: 20041124
  2. GEMZAR [Suspect]
     Indication: NON-SMALL CELL LUNG CANCER
     Dosage: 1ST DOSE: 09AUG04
     Route: 042
     Dates: start: 20040809, end: 20041006
  3. DOCETAXEL [Suspect]
     Indication: NON-SMALL CELL LUNG CANCER
     Dosage: 1ST DOSE: 09AUG04
     Route: 042
     Dates: start: 20040809, end: 20041124
  4. RADIOTHERAPY [Suspect]
     Indication: NON-SMALL CELL LUNG CANCER
     Dosage: DOSE = GRAY 1ST DOSE: 21-OCT-2004
     Dates: start: 20041213, end: 20041213
  5. NICOTINE [Concomitant]
     Indication: EX-SMOKER
     Route: 062
     Dates: start: 20040728
  6. LEXAPRO [Concomitant]
     Indication: DEPRESSION
     Dates: start: 20040728, end: 20040816
  7. MS CONTIN [Concomitant]
     Indication: PAIN
     Dates: start: 20040728
  8. SENOKOT [Concomitant]
     Indication: CONSTIPATION
     Dates: start: 20040728
  9. PAXIL [Concomitant]
     Indication: DEPRESSION
     Dates: start: 20040816
  10. FENTANYL CITRATE [Concomitant]
     Indication: PAIN
     Route: 062
     Dates: start: 20041201
  11. PREVACID [Concomitant]
     Indication: GASTROOESOPHAGEAL REFLUX DISEASE
     Dates: start: 20041201
  12. MEGACE [Concomitant]
     Indication: INCREASED APPETITE
     Dates: start: 20041201, end: 20041214
  13. REGLAN [Concomitant]
     Indication: GASTROOESOPHAGEAL REFLUX DISEASE
     Dates: start: 20041202
  14. PREDNISONE [Concomitant]
     Indication: ANTIINFLAMMATORY THERAPY
     Dates: start: 20041202
  15. LORTAB [Concomitant]
     Indication: PAIN
     Dates: start: 20040701

REACTIONS (13)
  - BRONCHITIS [None]
  - CACHEXIA [None]
  - DYSPHAGIA [None]
  - MALNUTRITION [None]
  - MUCOSAL INFLAMMATION [None]
  - NAUSEA [None]
  - PNEUMONIA ASPIRATION [None]
  - PNEUMONITIS [None]
  - PNEUMONITIS CHEMICAL [None]
  - RADIATION OESOPHAGITIS [None]
  - STOMATITIS [None]
  - VOMITING [None]
  - WEIGHT DECREASED [None]
